FAERS Safety Report 4819399-7 (Version None)
Quarter: 2005Q4

REPORT INFORMATION
  Report Type: 
  Country: None (occurrence: None)
  Receive Date: 20051103
  Receipt Date: 20051024
  Transmission Date: 20060501
  Serious: Yes (Death, Hospitalization)
  Sender: FDA-Public Use
  Company Number: FR-SANOFI-SYNTHELABO-A02200502823

PATIENT
  Age: 85 Year
  Sex: Female

DRUGS (6)
  1. PLAVIX [Suspect]
     Indication: CORONARY ARTERY INSUFFICIENCY
     Route: 048
     Dates: start: 20050601
  2. PLAVIX [Suspect]
     Indication: CEREBROVASCULAR ACCIDENT
     Route: 048
     Dates: start: 20050601
  3. INSULIN [Concomitant]
     Indication: DIABETES MELLITUS
     Dosage: UNK
     Route: 065
  4. SECTRAL [Concomitant]
     Indication: ARRHYTHMIA
     Dosage: UNK
     Route: 065
  5. SECTRAL [Concomitant]
     Dosage: UNK
     Route: 065
  6. IKOREL [Concomitant]
     Indication: CORONARY ARTERY INSUFFICIENCY
     Dosage: UNK
     Route: 048

REACTIONS (4)
  - CEREBROVASCULAR ACCIDENT [None]
  - DRUG INEFFECTIVE [None]
  - PULMONARY OEDEMA [None]
  - PYREXIA [None]
